FAERS Safety Report 13671581 (Version 2)
Quarter: 2017Q2

REPORT INFORMATION
  Report Type: Spontaneous
  Country: US (occurrence: US)
  Receive Date: 20170620
  Receipt Date: 20170629
  Transmission Date: 20170830
  Serious: Yes (Hospitalization)
  Sender: FDA-Public Use
  Company Number: US-ACTELION-A-NJ2017-155503

PATIENT
  Age: 68 Year
  Sex: Female
  Weight: 69.84 kg

DRUGS (1)
  1. VELETRI [Suspect]
     Active Substance: EPOPROSTENOL
     Indication: PULMONARY ARTERIAL HYPERTENSION
     Dosage: 57 NG/KG, PER MIN
     Route: 042

REACTIONS (7)
  - Lung infiltration [Unknown]
  - Device alarm issue [Unknown]
  - Vascular access complication [Unknown]
  - Respiratory distress [Unknown]
  - Malaise [Unknown]
  - Catheter management [Unknown]
  - Pulmonary oedema [Unknown]

NARRATIVE: CASE EVENT DATE: 20170619
